FAERS Safety Report 6326290-6 (Version None)
Quarter: 2009Q3

REPORT INFORMATION
  Report Type: 
  Country: None (occurrence: None)
  Receive Date: 20090821
  Receipt Date: 20090807
  Transmission Date: 20100115
  Serious: Yes (Hospitalization)
  Sender: FDA-Public Use
  Company Number: 001461

PATIENT
  Age: 25 Year

DRUGS (1)
  1. LACOSAMIDE [Suspect]
     Dosage: 200 MG BID. INTRAVENOUS
     Route: 042

REACTIONS (1)
  - GASTROINTESTINAL TUBE INSERTION [None]
